FAERS Safety Report 16881158 (Version 1)
Quarter: 2019Q4

REPORT INFORMATION
  Report Type: Spontaneous
  Country: US (occurrence: US)
  Receive Date: 20191002
  Receipt Date: 20191002
  Transmission Date: 20200122
  Serious: No
  Sender: FDA-Public Use
  Company Number: None

PATIENT
  Age: 48 Year
  Sex: Female
  Weight: 115.2 kg

DRUGS (1)
  1. AMOS HEMPS [CBD OIL IN MCT OIL] [Suspect]
     Active Substance: CANNABIDIOL\CANNABIS SATIVA SEED OIL

REACTIONS (1)
  - Suspected product quality issue [None]

NARRATIVE: CASE EVENT DATE: 20190928
